FAERS Safety Report 11497850 (Version 1)
Quarter: 2015Q3

REPORT INFORMATION
  Report Type: Spontaneous
  Country: DK (occurrence: DK)
  Receive Date: 20150911
  Receipt Date: 20150911
  Transmission Date: 20151125
  Serious: Yes (Hospitalization)
  Sender: FDA-Public Use
  Company Number: PHHY2015DK106869

PATIENT
  Age: 51 Year
  Sex: Male

DRUGS (1)
  1. BIOCLAVID [Suspect]
     Active Substance: AMOXICILLIN\CLAVULANIC ACID
     Indication: BACTERIAL INFECTION
     Dosage: STRENGTH: 500 MG + 125 MG.
     Route: 048
     Dates: start: 20150604, end: 20150613

REACTIONS (12)
  - Chromaturia [Unknown]
  - Blood alkaline phosphatase increased [Recovering/Resolving]
  - Aspartate aminotransferase increased [Unknown]
  - Jaundice [Unknown]
  - Serum ferritin increased [Unknown]
  - Pruritus [Unknown]
  - Faeces pale [Unknown]
  - Blood bilirubin increased [Recovering/Resolving]
  - Fatigue [Unknown]
  - Hepatitis toxic [Recovering/Resolving]
  - Abdominal discomfort [Unknown]
  - Alanine aminotransferase increased [Recovering/Resolving]

NARRATIVE: CASE EVENT DATE: 20150706
